FAERS Safety Report 19419576 (Version 2)
Quarter: 2021Q2

REPORT INFORMATION
  Report Type: Other
  Country: US (occurrence: US)
  Receive Date: 20210615
  Receipt Date: 20210623
  Transmission Date: 20210717
  Serious: Yes (Hospitalization)
  Sender: FDA-Public Use
  Company Number: US-ROCHE-2844887

PATIENT
  Age: 61 Year
  Sex: Female

DRUGS (15)
  1. PREDNISONE. [Concomitant]
     Active Substance: PREDNISONE
     Dates: start: 20190603
  2. CLOBETASOL [Concomitant]
     Active Substance: CLOBETASOL
  3. PREDNISONE. [Concomitant]
     Active Substance: PREDNISONE
     Indication: PEMPHIGOID
     Dates: start: 20190423
  4. LIDEX [Concomitant]
     Active Substance: FLUOCINONIDE
  5. FLOVENT [Concomitant]
     Active Substance: FLUTICASONE PROPIONATE
     Dosage: 4 WEEKS
  6. PREDNISONE. [Concomitant]
     Active Substance: PREDNISONE
     Dates: start: 20190520
  7. PREDNISONE. [Concomitant]
     Active Substance: PREDNISONE
     Dates: start: 20190924
  8. OMEPRAZOLE. [Concomitant]
     Active Substance: OMEPRAZOLE
  9. CALCIUM [Concomitant]
     Active Substance: CALCIUM
  10. MAGIC MOUTHWASH [DIPHENHYDRAMINE;LIDOCAINE] [Concomitant]
     Indication: PEMPHIGOID
  11. BENZOCAINE. [Concomitant]
     Active Substance: BENZOCAINE
  12. RITUXAN [Suspect]
     Active Substance: RITUXIMAB
     Indication: PRODUCT USED FOR UNKNOWN INDICATION
     Route: 065
     Dates: start: 20190606
  13. FLUOCINONIDE. [Concomitant]
     Active Substance: FLUOCINONIDE
  14. PREDNISONE. [Concomitant]
     Active Substance: PREDNISONE
     Dates: start: 20191210
  15. PREDNISONE. [Concomitant]
     Active Substance: PREDNISONE
     Dates: start: 20191111

REACTIONS (25)
  - Sepsis [Unknown]
  - Oral disorder [Recovered/Resolved]
  - Intraocular pressure increased [Unknown]
  - Hypertension [Unknown]
  - Oral disorder [Unknown]
  - Pyrexia [Recovered/Resolved]
  - Bacteraemia [Unknown]
  - Haematoma [Unknown]
  - Muscular weakness [Unknown]
  - Weight increased [Unknown]
  - Myopia [Unknown]
  - Anaemia [Unknown]
  - Pulmonary embolism [Unknown]
  - Joint swelling [Unknown]
  - Dyspnoea [Unknown]
  - Blood glucose increased [Unknown]
  - Fungal infection [Unknown]
  - Contusion [Unknown]
  - Tooth abscess [Unknown]
  - Urinary tract infection [Unknown]
  - Fall [Unknown]
  - Oedema [Unknown]
  - Impaired healing [Unknown]
  - Skin atrophy [Unknown]
  - Gingival disorder [Unknown]

NARRATIVE: CASE EVENT DATE: 20190924
